FAERS Safety Report 9199507 (Version 2)
Quarter: 2013Q2

REPORT INFORMATION
  Report Type: Spontaneous
  Country: DE (occurrence: DE)
  Receive Date: 20130329
  Receipt Date: 20130507
  Transmission Date: 20140414
  Serious: Yes (Other)
  Sender: FDA-Public Use
  Company Number: DE-ALEXION-A201300598

PATIENT
  Age: 1 Day
  Sex: 0
  Weight: 1 kg

DRUGS (1)
  1. SOLIRIS [Suspect]
     Dosage: 600 MG, Q2W
     Route: 064
     Dates: start: 20110706

REACTIONS (3)
  - Small for dates baby [Unknown]
  - Premature baby [Unknown]
  - Foetal exposure during pregnancy [Recovered/Resolved with Sequelae]
